FAERS Safety Report 8929396 (Version 1)
Quarter: 2012Q4

REPORT INFORMATION
  Report Type: Report from Study
  Country: BE (occurrence: BE)
  Receive Date: 20121127
  Receipt Date: 20121127
  Transmission Date: 20130627
  Serious: Yes (Life-Threatening)
  Sender: FDA-Public Use
  Company Number: BE-CELGENEUS-013-21880-12112316

PATIENT
  Age: 82 Year
  Sex: Male
  Weight: 86 kg

DRUGS (7)
  1. REVLIMID [Suspect]
     Indication: MDS
     Dosage: 10 Milligram
     Route: 048
     Dates: start: 20120823, end: 20120914
  2. REVLIMID [Suspect]
     Dosage: 5 Milligram
     Route: 048
     Dates: start: 20121020
  3. SINTROM [Concomitant]
     Indication: CHRONIC ATRIAL FIBRILLATION
     Route: 065
     Dates: start: 2008, end: 20120914
  4. ZOVIRAX [Concomitant]
     Indication: PROPHYLAXIS
     Dosage: 800 Milligram
     Route: 065
     Dates: start: 20120823
  5. TAMSULOSINE [Concomitant]
     Indication: PROPHYLAXIS
     Route: 065
     Dates: start: 2008
  6. VITAMIN A AND D [Concomitant]
     Indication: DRUG USE FOR UNKNOWN INDICATION
     Route: 065
     Dates: start: 2008
  7. VIAGRA [Concomitant]
     Indication: DRUG USE FOR UNKNOWN INDICATION
     Route: 065
     Dates: start: 2008

REACTIONS (4)
  - Pancytopenia [Recovered/Resolved]
  - Dyspnoea [Recovering/Resolving]
  - Rash [Recovered/Resolved]
  - Pruritus [Recovered/Resolved]
